FAERS Safety Report 10268227 (Version 1)
Quarter: 2014Q2

REPORT INFORMATION
  Report Type: Report from Study
  Country: MX (occurrence: MX)
  Receive Date: 20140630
  Receipt Date: 20140630
  Transmission Date: 20141212
  Serious: Yes (Hospitalization)
  Sender: FDA-Public Use
  Company Number: PHHY2014MX078098

PATIENT
  Age: 5 Year
  Sex: Male

DRUGS (1)
  1. OMNITROPE [Suspect]
     Indication: GROWTH RETARDATION
     Dosage: 0.5 MG, DAILY
     Dates: start: 20130729, end: 201402

REACTIONS (1)
  - Neoplasm skin [Recovering/Resolving]
